FAERS Safety Report 25149412 (Version 1)
Quarter: 2025Q2

REPORT INFORMATION
  Report Type: Spontaneous
  Country: US (occurrence: US)
  Receive Date: 20250402
  Receipt Date: 20250402
  Transmission Date: 20250717
  Serious: Yes (Hospitalization)
  Sender: MYLAN
  Company Number: US-MYLANLABS-2025M1028052

PATIENT
  Age: 68 Year
  Sex: Female

DRUGS (17)
  1. METOPROLOL SUCCINATE [Interacting]
     Active Substance: METOPROLOL SUCCINATE
     Indication: Hypertension
     Dosage: 100 MILLIGRAM, QD
  2. METOPROLOL SUCCINATE [Interacting]
     Active Substance: METOPROLOL SUCCINATE
  3. CLOZAPINE [Interacting]
     Active Substance: CLOZAPINE
     Indication: Schizophrenia
     Dosage: 12.5 MILLIGRAM, BID,ON DAY 1
  4. CLOZAPINE [Interacting]
     Active Substance: CLOZAPINE
     Dosage: 25 MILLIGRAM, BID,ON DAY 2
  5. CLOZAPINE [Interacting]
     Active Substance: CLOZAPINE
     Dosage: 50 MILLIGRAM, BID,ON DAY 3
  6. CLOZAPINE [Interacting]
     Active Substance: CLOZAPINE
     Dosage: 75 MILLIGRAM, BID,ON DAY 4
  7. CLOZAPINE [Interacting]
     Active Substance: CLOZAPINE
     Dosage: 100 MILLIGRAM, BID,FROM DAY 5
  8. CLOZAPINE [Interacting]
     Active Substance: CLOZAPINE
  9. FLUOXETINE [Interacting]
     Active Substance: FLUOXETINE HYDROCHLORIDE
     Indication: Schizophrenia
     Dosage: 60 MILLIGRAM, QD
  10. RISPERIDONE [Concomitant]
     Active Substance: RISPERIDONE
     Indication: Schizophrenia
     Dosage: 12 MILLIGRAM, QD,ON DAY 1 AND 2
  11. RISPERIDONE [Concomitant]
     Active Substance: RISPERIDONE
     Dosage: 4 MILLIGRAM,ON DAY 3 AND 4
  12. RISPERIDONE [Concomitant]
     Active Substance: RISPERIDONE
     Dosage: 3 MILLIGRAM, BID,FROM DAY 5 TILL DAY 9
  13. RISPERIDONE [Concomitant]
     Active Substance: RISPERIDONE
     Dosage: 2 MILLIGRAM, BID,ON DAY 10
  14. RISPERIDONE [Concomitant]
     Active Substance: RISPERIDONE
     Dosage: 1 MILLIGRAM, BID,ON DAY 11
  15. RISPERIDONE [Concomitant]
     Active Substance: RISPERIDONE
     Dosage: 0.5 MILLIGRAM, BID,ON DAY 12
  16. RISPERIDONE [Concomitant]
     Active Substance: RISPERIDONE
  17. TRAZODONE [Concomitant]
     Active Substance: TRAZODONE HYDROCHLORIDE
     Indication: Schizophrenia
     Dosage: 50 MILLIGRAM, QD, NIGHTLY

REACTIONS (3)
  - Orthostatic hypotension [Unknown]
  - Antipsychotic drug level increased [Unknown]
  - Drug interaction [Unknown]
